FAERS Safety Report 24354545 (Version 1)
Quarter: 2024Q3

REPORT INFORMATION
  Report Type: Spontaneous
  Country: US (occurrence: US)
  Receive Date: 20240923
  Receipt Date: 20240923
  Transmission Date: 20241017
  Serious: Yes (Other)
  Sender: SANOFI AVENTIS
  Company Number: US-SA-2024SA272698

PATIENT
  Age: 55 Year
  Sex: Female
  Weight: 118 kg

DRUGS (1)
  1. DUPIXENT [Suspect]
     Active Substance: DUPILUMAB
     Indication: Dermatitis atopic
     Dosage: 300 MG, QOW
     Route: 058
     Dates: start: 202407

REACTIONS (9)
  - Thrombocytopenia [Unknown]
  - Bleeding time prolonged [Unknown]
  - Haemorrhage [Unknown]
  - Impaired healing [Unknown]
  - Wound [Unknown]
  - Sleep disorder [Not Recovered/Not Resolved]
  - Vitreous floaters [Unknown]
  - Pruritus [Not Recovered/Not Resolved]
  - Skin exfoliation [Recovered/Resolved]

NARRATIVE: CASE EVENT DATE: 20240101
